FAERS Safety Report 9168835 (Version 2)
Quarter: 2013Q1

REPORT INFORMATION
  Report Type: Spontaneous
  Country: JP (occurrence: None)
  Receive Date: 20130308
  Receipt Date: 20130319
  Transmission Date: 20140127
  Serious: Yes (Other)
  Sender: FDA-Public Use
  Company Number: ENT 2013-0045

PATIENT
  Age: 66 Year
  Sex: Male

DRUGS (2)
  1. COMTAN (ENTACAPONE) [Suspect]
     Indication: PARKINSON^S DISEASE
     Dosage: 200 MG (100 MG, 2 IN 1 D
     Route: 048
  2. MADOPAR [Concomitant]

REACTIONS (2)
  - Drug dose omission [None]
  - Neuroleptic malignant syndrome [None]
